FAERS Safety Report 15234736 (Version 2)
Quarter: 2019Q1

REPORT INFORMATION
  Report Type: Spontaneous
  Country: US (occurrence: US)
  Receive Date: 20180803
  Receipt Date: 20190326
  Transmission Date: 20190417
  Serious: Yes (Other)
  Sender: FDA-Public Use
  Company Number: US-ASTRAZENECA-2018SE97070

PATIENT
  Age: 44 Year
  Sex: Male
  Weight: 87.5 kg

DRUGS (11)
  1. ANDROGEL [Concomitant]
     Active Substance: TESTOSTERONE
  2. CEFDINIR. [Concomitant]
     Active Substance: CEFDINIR
  3. LOSARTAN. [Concomitant]
     Active Substance: LOSARTAN
  4. NEXIUM [Suspect]
     Active Substance: ESOMEPRAZOLE MAGNESIUM
     Indication: GASTROOESOPHAGEAL REFLUX DISEASE
     Route: 048
     Dates: start: 2012, end: 2017
  5. PANTOPRAZOLE [Suspect]
     Active Substance: PANTOPRAZOLE
     Route: 065
     Dates: start: 2014, end: 2016
  6. OMEPRAZOLE. [Suspect]
     Active Substance: OMEPRAZOLE
     Indication: GASTROOESOPHAGEAL REFLUX DISEASE
     Route: 065
     Dates: start: 2016
  7. AMLODIPINE [Concomitant]
     Active Substance: AMLODIPINE BESYLATE
  8. ASPIRIN. [Concomitant]
     Active Substance: ASPIRIN
  9. DEXILANT [Suspect]
     Active Substance: DEXLANSOPRAZOLE
     Indication: GASTROOESOPHAGEAL REFLUX DISEASE
     Route: 065
     Dates: start: 2016
  10. LISINOPRIL. [Concomitant]
     Active Substance: LISINOPRIL
  11. AMOXICILLIN. [Concomitant]
     Active Substance: AMOXICILLIN

REACTIONS (4)
  - Chronic kidney disease [Not Recovered/Not Resolved]
  - Acute kidney injury [Unknown]
  - Renal atrophy [Unknown]
  - Renal failure [Not Recovered/Not Resolved]

NARRATIVE: CASE EVENT DATE: 2012
